FAERS Safety Report 21871978 (Version 1)
Quarter: 2023Q1

REPORT INFORMATION
  Report Type: Spontaneous
  Country: US (occurrence: None)
  Receive Date: 20230114
  Receipt Date: 20230114
  Transmission Date: 20230418
  Serious: No
  Sender: FDA-Public Use
  Company Number: None

PATIENT
  Age: 29 Year
  Sex: Female
  Weight: 56.25 kg

DRUGS (1)
  1. MICONAZOLE 3 [Suspect]
     Active Substance: MICONAZOLE NITRATE
     Indication: Fungal infection
     Dosage: OTHER QUANTITY : 1 APPLICATOR;?FREQUENCY : DAILY;?
     Route: 067

REACTIONS (5)
  - Application site pain [None]
  - Application site burn [None]
  - Application site pruritus [None]
  - Pruritus genital [None]
  - Genital burning sensation [None]

NARRATIVE: CASE EVENT DATE: 20230114
